FAERS Safety Report 17190820 (Version 1)
Quarter: 2019Q4

REPORT INFORMATION
  Report Type: Spontaneous
  Country: GB (occurrence: GB)
  Receive Date: 20191223
  Receipt Date: 20191223
  Transmission Date: 20200122
  Serious: Yes (Other)
  Sender: FDA-Public Use
  Company Number: GB-TORRENT-00022591

PATIENT
  Age: 23 Year
  Sex: Female
  Weight: 75 kg

DRUGS (2)
  1. LAMOTRIGINE. [Suspect]
     Active Substance: LAMOTRIGINE
     Indication: EPILEPSY
     Route: 048
     Dates: start: 20161207
  2. FEANOLLA [Interacting]
     Active Substance: DESOGESTREL
     Indication: PRODUCT USED FOR UNKNOWN INDICATION
     Dosage: UNKNOWN
     Route: 048
     Dates: start: 201910, end: 201911

REACTIONS (3)
  - Maternal exposure during pregnancy [Unknown]
  - Drug interaction [Unknown]
  - Pregnancy on oral contraceptive [Unknown]

NARRATIVE: CASE EVENT DATE: 20191120
